FAERS Safety Report 5615541-9 (Version None)
Quarter: 2008Q1

REPORT INFORMATION
  Report Type: 
  Country: None (occurrence: None)
  Receive Date: 20080204
  Receipt Date: 20080204
  Transmission Date: 20080703
  Serious: Yes (Life-Threatening, Hospitalization)
  Sender: FDA-Public Use
  Company Number: None

PATIENT
  Age: 68 Year
  Sex: Male

DRUGS (3)
  1. PROPOFOL [Suspect]
     Indication: ENDOTRACHEAL INTUBATION
     Dosage: 130MG PER HOUR IV
     Route: 042
     Dates: start: 20071220, end: 20071222
  2. PROPOFOL [Suspect]
     Indication: SURGERY
     Dosage: 130MG PER HOUR IV
     Route: 042
     Dates: start: 20071220, end: 20071222
  3. FENTANYL [Suspect]
     Indication: SURGERY
     Dosage: 100MCG ONCE IV
     Route: 042
     Dates: start: 20071220, end: 20071220

REACTIONS (6)
  - BLOOD PRESSURE DECREASED [None]
  - DYSPNOEA [None]
  - JAUNDICE [None]
  - OXYGEN SATURATION DECREASED [None]
  - RESPIRATORY DEPRESSION [None]
  - UNRESPONSIVE TO STIMULI [None]
